FAERS Safety Report 21163895 (Version 4)
Quarter: 2022Q4

REPORT INFORMATION
  Report Type: Report from Study
  Country: FR (occurrence: FR)
  Receive Date: 20220803
  Receipt Date: 20221107
  Transmission Date: 20230113
  Serious: Yes (Hospitalization)
  Sender: FDA-Public Use
  Company Number: FR-ABBVIE-22P-056-4479224-00

PATIENT
  Age: 60 Year
  Sex: Male

DRUGS (18)
  1. BORTEZOMIB [Suspect]
     Active Substance: BORTEZOMIB
     Indication: Plasma cell myeloma
     Dosage: CYCLES 1-8: DAYS 1,4,8 AND 11
     Route: 058
     Dates: start: 20190205, end: 20190712
  2. DEXAMETHASONE [Suspect]
     Active Substance: DEXAMETHASONE
     Indication: Plasma cell myeloma
     Dosage: CYCLES 1 TO 3: 20MG ON DAYS 1, 2,4,5,8,9,11,12 AND 15?CYCLES 4 TO 8: 20MG ON DAYS 1, 2,4,5,8,9,11...
     Route: 048
     Dates: start: 20190205, end: 20220705
  3. DEXAMETHASONE [Suspect]
     Active Substance: DEXAMETHASONE
     Indication: Plasma cell myeloma
     Dosage: CYCLES 9+: 40MG (OR 20MG) WEEKLY
     Route: 048
     Dates: start: 20221013
  4. ALLOPURINOL [Concomitant]
     Active Substance: ALLOPURINOL
     Indication: Prophylaxis
     Route: 048
     Dates: start: 20190205
  5. ACETAMINOPHEN [Concomitant]
     Active Substance: ACETAMINOPHEN
     Indication: Infusion
     Route: 048
     Dates: start: 20190205
  6. ACETAMINOPHEN [Concomitant]
     Active Substance: ACETAMINOPHEN
     Indication: Infusion
     Route: 048
     Dates: start: 20190205
  7. ESOMEPRAZOLE [Concomitant]
     Active Substance: ESOMEPRAZOLE
     Indication: Pain prophylaxis
     Route: 048
     Dates: start: 20190206
  8. SODIUM BICARBONATE [Concomitant]
     Active Substance: SODIUM BICARBONATE
     Indication: Prophylaxis
     Dosage: 1 UNIT: APPLICATION 1.4%
     Route: 002
     Dates: start: 20190206
  9. NEFOPAM [Concomitant]
     Active Substance: NEFOPAM
     Indication: Bone pain
     Dosage: TIME INTERVAL: AS NECESSARY
     Route: 048
     Dates: start: 20190208
  10. PENTACARINAT [Concomitant]
     Active Substance: PENTAMIDINE ISETHIONATE
     Indication: Antifungal prophylaxis
     Route: 055
     Dates: start: 20190215
  11. PRIMPERAN [Concomitant]
     Active Substance: METOCLOPRAMIDE HYDROCHLORIDE
     Indication: Prophylaxis of nausea and vomiting
     Route: 048
     Dates: start: 20190206
  12. PENICILLIN V [Concomitant]
     Active Substance: PENICILLIN V
     Indication: Antibiotic prophylaxis
     Dosage: 1 UNIT: MIU
     Route: 048
     Dates: start: 20190308
  13. PHLOROGLUCINOL\1,3,5-TRIMETHOXYBENZENE [Concomitant]
     Active Substance: PHLOROGLUCINOL\1,3,5-TRIMETHOXYBENZENE
     Indication: Pain prophylaxis
     Dosage: TIME INTERVAL: AS NECESSARY
     Route: 048
     Dates: start: 20190531
  14. HEPTAMINOL HYDROCHLORIDE [Concomitant]
     Active Substance: HEPTAMINOL HYDROCHLORIDE
     Indication: Hypotension
     Route: 048
     Dates: start: 20190709
  15. POTASSIUM CHLORIDE [Concomitant]
     Active Substance: POTASSIUM CHLORIDE
     Indication: Prophylaxis
     Route: 048
     Dates: start: 20190705
  16. BISOPROLOL [Concomitant]
     Active Substance: BISOPROLOL
     Indication: Hypertension
     Route: 048
     Dates: start: 20200908
  17. CETIRIZINE [Concomitant]
     Active Substance: CETIRIZINE HYDROCHLORIDE
     Indication: Infusion
     Dosage: TIME INTERVAL: AS NECESSARY
     Route: 048
     Dates: start: 20200526
  18. VALACYCLOVIR HYDROCHLORIDE [Concomitant]
     Active Substance: VALACYCLOVIR HYDROCHLORIDE
     Indication: Antiviral prophylaxis
     Route: 048
     Dates: start: 20190204

REACTIONS (1)
  - COVID-19 [Recovered/Resolved]

NARRATIVE: CASE EVENT DATE: 20220720
